FAERS Safety Report 6216036-4 (Version None)
Quarter: 2009Q2

REPORT INFORMATION
  Report Type: 
  Country: None (occurrence: None)
  Receive Date: 20090605
  Receipt Date: 20090602
  Transmission Date: 20091009
  Serious: Yes (Death, Other)
  Sender: FDA-Public Use
  Company Number: PHEH2009US05652

PATIENT
  Age: 68 Year
  Sex: Male

DRUGS (2)
  1. EXJADE [Suspect]
     Indication: MYELODYSPLASTIC SYNDROME
     Dosage: 20 MG/KG/DAY
     Route: 048
     Dates: start: 20090122, end: 20090301
  2. DECITABINE [Concomitant]

REACTIONS (2)
  - CONFUSIONAL STATE [None]
  - DEATH [None]
